FAERS Safety Report 7135903-0 (Version None)
Quarter: 2010Q4

REPORT INFORMATION
  Report Type: 
  Country: None (occurrence: None)
  Receive Date: 20101204
  Receipt Date: 20101125
  Transmission Date: 20110411
  Serious: Yes (Hospitalization)
  Sender: FDA-Public Use
  Company Number: GB-BAYER-2010-000559

PATIENT

DRUGS (2)
  1. RENNIE SPEARMINT [Suspect]
     Indication: PRODUCT USED FOR UNKNOWN INDICATION
     Dosage: UNK
     Dates: start: 20101114, end: 20101114
  2. HEART MEDICATION (NOS) [Concomitant]

REACTIONS (4)
  - ANAPHYLACTIC SHOCK [None]
  - OROPHARYNGEAL PAIN [None]
  - SPEECH DISORDER [None]
  - SWOLLEN TONGUE [None]
